FAERS Safety Report 18159191 (Version 1)
Quarter: 2020Q3

REPORT INFORMATION
  Report Type: Report from Study
  Country: None (occurrence: DO)
  Receive Date: 20200818
  Receipt Date: 20200818
  Transmission Date: 20201103
  Serious: Yes (Life-Threatening, Disabling, Other)
  Sender: FDA-Public Use
  Company Number: DO-ABBVIE-20K-279-3527860-00

PATIENT
  Sex: Female

DRUGS (2)
  1. HUMIRA [Suspect]
     Active Substance: ADALIMUMAB
     Route: 058
     Dates: start: 2020, end: 20200619
  2. HUMIRA [Suspect]
     Active Substance: ADALIMUMAB
     Indication: RHEUMATOID ARTHRITIS
     Route: 058
     Dates: start: 20170125, end: 201912

REACTIONS (13)
  - Limb injury [Not Recovered/Not Resolved]
  - Peripheral swelling [Unknown]
  - Road traffic accident [Not Recovered/Not Resolved]
  - Joint swelling [Unknown]
  - Inflammation [Not Recovered/Not Resolved]
  - Purulent discharge [Not Recovered/Not Resolved]
  - Pain [Not Recovered/Not Resolved]
  - Pulmonary tuberculosis [Recovering/Resolving]
  - Gait disturbance [Not Recovered/Not Resolved]
  - Joint injury [Not Recovered/Not Resolved]
  - Insomnia [Not Recovered/Not Resolved]
  - Body temperature increased [Unknown]
  - Feeling hot [Not Recovered/Not Resolved]

NARRATIVE: CASE EVENT DATE: 201912
